FAERS Safety Report 5606023-9 (Version None)
Quarter: 2008Q1

REPORT INFORMATION
  Report Type: 
  Country: None (occurrence: None)
  Receive Date: 20080123
  Receipt Date: 20080108
  Transmission Date: 20080703
  Serious: Yes (Other)
  Sender: FDA-Public Use
  Company Number: CIP08000057

PATIENT
  Age: 81 Year
  Sex: Female

DRUGS (2)
  1. ACTONEL [Suspect]
     Indication: OSTEOPOROSIS
     Dosage: 35MG ONCE WEEKLY; ORAL
     Route: 048
  2. CALCIUM (CALCIUM) [Concomitant]

REACTIONS (7)
  - BLEPHAROSPASM [None]
  - DIPLOPIA [None]
  - EXTRAOCULAR MUSCLE DISORDER [None]
  - EYELID PTOSIS [None]
  - FATIGUE [None]
  - OCULAR MYASTHENIA [None]
  - STRABISMUS [None]
